FAERS Safety Report 6430967-1 (Version None)
Quarter: 2009Q4

REPORT INFORMATION
  Report Type: 
  Country: None (occurrence: None)
  Receive Date: 20091106
  Receipt Date: 20091029
  Transmission Date: 20100525
  Serious: Yes (Hospitalization, Disabling, Other)
  Sender: FDA-Public Use
  Company Number: CA-PFIZER INC-2009277177

PATIENT
  Age: 30 Year
  Sex: Male
  Weight: 90.7 kg

DRUGS (1)
  1. ZELDOX [Suspect]
     Indication: SCHIZOPHRENIA
     Dosage: 80 MG, 2X/DAY
     Route: 048
     Dates: start: 20090622

REACTIONS (5)
  - DIABETES MELLITUS [None]
  - DIARRHOEA [None]
  - POLYDIPSIA [None]
  - POLYURIA [None]
  - SOMNOLENCE [None]
